FAERS Safety Report 18861917 (Version 2)
Quarter: 2021Q2

REPORT INFORMATION
  Report Type: Spontaneous
  Country: None (occurrence: PK)
  Receive Date: 20210209
  Receipt Date: 20210607
  Transmission Date: 20210717
  Serious: Yes (Death, Hospitalization, Other)
  Sender: FDA-Public Use
  Company Number: PK-CYCLE PHARMACEUTICALS LTD-2021-CYC-000003

PATIENT
  Age: 5 Year
  Sex: Male
  Weight: 30 kg

DRUGS (1)
  1. NITISINONE [Suspect]
     Active Substance: NITISINONE
     Indication: TYROSINAEMIA
     Dosage: 5 MG
     Dates: start: 20201104

REACTIONS (4)
  - Pyrexia [Unknown]
  - Pneumonia [None]
  - Death [Fatal]
  - Respiratory distress [Unknown]

NARRATIVE: CASE EVENT DATE: 202012
